FAERS Safety Report 8055872-9 (Version None)
Quarter: 2012Q1

REPORT INFORMATION
  Report Type: 
  Country: None (occurrence: None)
  Receive Date: 20120119
  Receipt Date: 20120119
  Transmission Date: 20120608
  Serious: No
  Sender: FDA-Public Use
  Company Number: None

PATIENT
  Age: 30 Year
  Sex: Female
  Weight: 52.163 kg

DRUGS (1)
  1. GILENYA [Suspect]
     Indication: MULTIPLE SCLEROSIS
     Dosage: ONE CAPSULE BY MOUTH ONCE DAIL
     Route: 048
     Dates: start: 20110816, end: 20120119

REACTIONS (5)
  - FATIGUE [None]
  - BLOOD URINE PRESENT [None]
  - MACULAR OEDEMA [None]
  - OPTIC NEURITIS [None]
  - AMNESIA [None]
